FAERS Safety Report 18994490 (Version 3)
Quarter: 2021Q2

REPORT INFORMATION
  Report Type: Report from Study
  Country: BR (occurrence: BR)
  Receive Date: 20210310
  Receipt Date: 20210602
  Transmission Date: 20210717
  Serious: Yes (Other)
  Sender: FDA-Public Use
  Company Number: BR-BAYER-2021-101141

PATIENT
  Age: 53 Year
  Sex: Female

DRUGS (5)
  1. STIVARGA [Suspect]
     Active Substance: REGORAFENIB
     Indication: COLON CANCER
     Dosage: 120 MG, QD
     Dates: start: 20210225, end: 20210303
  2. STIVARGA [Suspect]
     Active Substance: REGORAFENIB
     Indication: COLON CANCER
     Dosage: 160 MG, QD
     Dates: start: 20210304
  3. STIVARGA [Suspect]
     Active Substance: REGORAFENIB
     Indication: COLON CANCER
     Dosage: 160 MG, QD
     Route: 048
     Dates: start: 20210318
  4. OMEPRAZOL [OMEPRAZOLE] [Concomitant]
     Active Substance: OMEPRAZOLE
     Indication: GASTRIC DISORDER
     Dosage: 20 MG, QD
     Dates: start: 20210323
  5. STIVARGA [Suspect]
     Active Substance: REGORAFENIB
     Indication: COLON CANCER
     Dosage: 80 MG, QD
     Dates: start: 20210218, end: 20210224

REACTIONS (23)
  - Hypertension [Recovering/Resolving]
  - Blood glucose abnormal [Recovering/Resolving]
  - Skin exfoliation [Recovering/Resolving]
  - Skin discolouration [Recovering/Resolving]
  - Dysgeusia [Recovering/Resolving]
  - Hepatic steatosis [Recovering/Resolving]
  - Dry mouth [Recovering/Resolving]
  - Pain of skin [Recovering/Resolving]
  - Aphthous ulcer [Recovering/Resolving]
  - Throat irritation [Recovering/Resolving]
  - Ear congestion [Recovering/Resolving]
  - Blood cholesterol increased [Recovering/Resolving]
  - Vitamin D decreased [Recovering/Resolving]
  - Neck pain [Recovering/Resolving]
  - Decreased appetite [Recovering/Resolving]
  - Saliva altered [Recovering/Resolving]
  - Hyperhidrosis [Recovering/Resolving]
  - Arthralgia [Recovering/Resolving]
  - Off label use [None]
  - Hyperkeratosis [Recovering/Resolving]
  - Diarrhoea [Recovered/Resolved]
  - Fatigue [Recovering/Resolving]
  - Neuropathy peripheral [Recovering/Resolving]

NARRATIVE: CASE EVENT DATE: 202102
